FAERS Safety Report 5632965-4 (Version None)
Quarter: 2008Q1

REPORT INFORMATION
  Report Type: 
  Country: None (occurrence: None)
  Receive Date: 20080221
  Receipt Date: 20080218
  Transmission Date: 20080703
  Serious: Yes (Hospitalization)
  Sender: FDA-Public Use
  Company Number: PHEH2007US11779

PATIENT
  Sex: Male
  Weight: 80.725 kg

DRUGS (3)
  1. TEKTURNA [Suspect]
     Indication: HYPERTENSION
     Dosage: 300 MG, QD
     Route: 048
     Dates: start: 20070823, end: 20070828
  2. COCAINE [Concomitant]
  3. I.V. SOLUTIONS [Suspect]
     Route: 042

REACTIONS (5)
  - ABDOMINAL PAIN [None]
  - GASTRIC DISORDER [None]
  - NAUSEA [None]
  - PANCREATITIS [None]
  - VOMITING [None]
